FAERS Safety Report 15115669 (Version 1)
Quarter: 2018Q3

REPORT INFORMATION
  Report Type: Spontaneous
  Country: JP (occurrence: JP)
  Receive Date: 20180706
  Receipt Date: 20180706
  Transmission Date: 20181010
  Serious: Yes (Death, Hospitalization, Other)
  Sender: FDA-Public Use
  Company Number: JP-SA-2018SA168042

PATIENT
  Age: 8 Decade
  Sex: Male

DRUGS (1)
  1. JEVTANA [Suspect]
     Active Substance: CABAZITAXEL
     Indication: PROSTATE CANCER
     Dosage: UNK
     Route: 041
     Dates: start: 20180618

REACTIONS (4)
  - Blood lactate dehydrogenase increased [Unknown]
  - Tumour lysis syndrome [Not Recovered/Not Resolved]
  - Death [Fatal]
  - Blood potassium increased [Unknown]

NARRATIVE: CASE EVENT DATE: 20180621
